FAERS Safety Report 13064708 (Version 1)
Quarter: 2016Q4

REPORT INFORMATION
  Report Type: Spontaneous
  Country: ES (occurrence: ES)
  Receive Date: 20161227
  Receipt Date: 20161227
  Transmission Date: 20170207
  Serious: Yes (Other)
  Sender: FDA-Public Use
  Company Number: ES-PFIZER INC-2016590503

PATIENT
  Age: 55 Year
  Sex: Female

DRUGS (6)
  1. CANDESARTAN CILEXETIL-HYDROCHLOROTHIAZIDE [Concomitant]
     Active Substance: CANDESARTAN CILEXETIL\HYDROCHLOROTHIAZIDE
     Indication: HYPERTENSION
     Dosage: 1 DF, DAILY
  2. SOMAVERT [Suspect]
     Active Substance: PEGVISOMANT
     Dosage: 20 MG, UNK
     Route: 058
     Dates: end: 201603
  3. ATORVASTATIN [Concomitant]
     Active Substance: ATORVASTATIN
     Indication: BLOOD CHOLESTEROL INCREASED
     Dosage: 1 DF, DAILY
  4. SOMATULINA [Concomitant]
     Active Substance: LANREOTIDE ACETATE
     Indication: PITUITARY TUMOUR
     Dosage: 1 INJECTION EVERY 28 DAYS (CYCLIC)
  5. VELMETIA [Concomitant]
     Active Substance: METFORMIN\SITAGLIPTIN
     Indication: BLOOD GLUCOSE INCREASED
     Dosage: 1 DF, DAILY
  6. SOMAVERT [Suspect]
     Active Substance: PEGVISOMANT
     Indication: SECRETORY ADENOMA OF PITUITARY
     Dosage: 10 MG, UNK
     Route: 058
     Dates: start: 20060505

REACTIONS (1)
  - Neoplasm recurrence [Recovering/Resolving]
